FAERS Safety Report 7644313-9 (Version None)
Quarter: 2011Q3

REPORT INFORMATION
  Report Type: 
  Country: None (occurrence: None)
  Receive Date: 20110729
  Receipt Date: 20110718
  Transmission Date: 20111222
  Serious: Yes (Hospitalization)
  Sender: FDA-Public Use
  Company Number: FR-NOVOPROD-332223

PATIENT
  Age: 84 Year
  Sex: Male

DRUGS (11)
  1. PREVISCAN                          /00261401/ [Concomitant]
  2. ASPIRIN [Concomitant]
  3. SECTRAL [Concomitant]
  4. LASIX [Concomitant]
  5. REPAGLINIDE [Suspect]
     Indication: DIABETES MELLITUS
     Dosage: 3 MG, QD
     Route: 048
     Dates: start: 20110514, end: 20110515
  6. IRBESARTAN [Concomitant]
     Dosage: 150 MG, QD
     Route: 048
  7. CORDARONE [Concomitant]
  8. LERCANIDIPINE [Concomitant]
  9. ALDACTONE [Concomitant]
     Dosage: 25 MG, QD
     Route: 048
  10. ZOCOR [Concomitant]
  11. REPAGLINIDE [Suspect]
     Dosage: 6 MG, QD
     Route: 048
     Dates: start: 20110516, end: 20110525

REACTIONS (2)
  - LEUKOPENIA [None]
  - NEUTROPENIA [None]
